FAERS Safety Report 7170410-0 (Version None)
Quarter: 2010Q4

REPORT INFORMATION
  Report Type: 
  Country: None (occurrence: None)
  Receive Date: 20101217
  Receipt Date: 20101213
  Transmission Date: 20110411
  Serious: Yes (Other)
  Sender: FDA-Public Use
  Company Number: BR-ROCHE-748123

PATIENT
  Sex: Female

DRUGS (2)
  1. BONIVA [Suspect]
     Route: 048
  2. BONIVA [Suspect]
     Dosage: HALF TABLET ONE DAY, HALF THE NEXT DAY: MEDICATION ERROR
     Route: 048

REACTIONS (3)
  - DEPRESSION [None]
  - DRUG ADMINISTRATION ERROR [None]
  - MALAISE [None]
